FAERS Safety Report 5868946-5 (Version None)
Quarter: 2008Q3

REPORT INFORMATION
  Report Type: 
  Country: None (occurrence: None)
  Receive Date: 20080828
  Receipt Date: 20080813
  Transmission Date: 20090109
  Serious: Yes (Life-Threatening, Hospitalization)
  Sender: FDA-Public Use
  Company Number: A-NJ2008-20258

PATIENT
  Age: 72 Year
  Sex: Female

DRUGS (3)
  1. TRACLEER(BOSENTAN TABLETS 125 MG US) TRACLEER(BOSENTANT) TABLET [Suspect]
     Indication: PULMONARY HYPERTENSION
     Dosage: 125MG,BID,ORAL
     Route: 048
  2. VENTAVIS [Suspect]
     Indication: PULMONARY HYPERTENSION
     Dosage: 5 UG, 6 X DAY, RESPIRATORY
     Route: 055
     Dates: start: 20080101
  3. VENTAVIS [Suspect]

REACTIONS (2)
  - BRONCHIOLOALVEOLAR CARCINOMA [None]
  - PNEUMONIA [None]
